FAERS Safety Report 15334119 (Version 1)
Quarter: 2018Q3

REPORT INFORMATION
  Report Type: Spontaneous
  Country: US (occurrence: US)
  Receive Date: 20180827
  Receipt Date: 20180827
  Transmission Date: 20181010
  Serious: Yes (Disabling)
  Sender: FDA-Public Use
  Company Number: None

PATIENT
  Age: 52 Year
  Sex: Female

DRUGS (1)
  1. LEVAQUIN [Suspect]
     Active Substance: LEVOFLOXACIN
     Indication: URINARY TRACT INFECTION
     Dosage: ?          QUANTITY:10 TABLET(S);?
     Route: 048
     Dates: start: 20180822, end: 20180824

REACTIONS (7)
  - Back pain [None]
  - Impaired work ability [None]
  - Musculoskeletal pain [None]
  - Neck pain [None]
  - Arthralgia [None]
  - Myalgia [None]
  - Insomnia [None]

NARRATIVE: CASE EVENT DATE: 20180824
